FAERS Safety Report 10508983 (Version 1)
Quarter: 2014Q4

REPORT INFORMATION
  Report Type: Spontaneous
  Country: BR (occurrence: BR)
  Receive Date: 20141009
  Receipt Date: 20141009
  Transmission Date: 20150528
  Serious: Yes (Other)
  Sender: FDA-Public Use
  Company Number: BR-GLAXOSMITHKLINE-BR2014GSK001296

PATIENT
  Age: 1 Year
  Sex: Female
  Weight: 10.7 kg

DRUGS (3)
  1. SERETIDE [Suspect]
     Active Substance: FLUTICASONE FUROATE\SALMETEROL XINAFOATE
     Indication: ASTHMA
     Dosage: 1 PUFF(S), BID
     Route: 055
     Dates: start: 20140915, end: 20140929
  2. SERETIDE [Suspect]
     Active Substance: FLUTICASONE FUROATE\SALMETEROL XINAFOATE
     Dosage: 25/250 MCG
  3. MONTELAIR [Suspect]
     Active Substance: MONTELUKAST SODIUM
     Indication: PRODUCT USED FOR UNKNOWN INDICATION
     Dosage: 1 DF, QD
     Route: 048
     Dates: start: 20140915

REACTIONS (9)
  - Oedema mouth [Not Recovered/Not Resolved]
  - Stomatitis [Unknown]
  - Platelet count increased [Not Recovered/Not Resolved]
  - Leukoplakia oral [Recovering/Resolving]
  - Oral candidiasis [Unknown]
  - Throat irritation [Unknown]
  - Psychomotor hyperactivity [Unknown]
  - Medication error [Recovered/Resolved]
  - Irritability [Unknown]

NARRATIVE: CASE EVENT DATE: 20140915
